FAERS Safety Report 18243420 (Version 2)
Quarter: 2020Q4

REPORT INFORMATION
  Report Type: Spontaneous
  Country: US (occurrence: US)
  Receive Date: 20200908
  Receipt Date: 20201004
  Transmission Date: 20210113
  Serious: Yes (Hospitalization, Other)
  Sender: FDA-Public Use
  Company Number: US-STEMLINE THERAPEUTICS, INC.-2020ST000052

PATIENT
  Age: 88 Year
  Sex: Male

DRUGS (2)
  1. ALBUMIN [Concomitant]
     Active Substance: ALBUMIN HUMAN
     Indication: HYPOALBUMINAEMIA
  2. ELZONRIS [Suspect]
     Active Substance: TAGRAXOFUSP-ERZS
     Indication: BLASTIC PLASMACYTOID DENDRITIC CELL NEOPLASIA
     Route: 042
     Dates: start: 20200824

REACTIONS (5)
  - Hypoalbuminaemia [Unknown]
  - Pyrexia [Unknown]
  - Fasciotomy [Unknown]
  - Hypotension [Unknown]
  - Thromboembolectomy [Unknown]

NARRATIVE: CASE EVENT DATE: 2020
